FAERS Safety Report 7074109-0 (Version None)
Quarter: 2010Q4

REPORT INFORMATION
  Report Type: 
  Country: None (occurrence: None)
  Receive Date: 20101029
  Receipt Date: 20101022
  Transmission Date: 20110411
  Serious: Yes (Hospitalization)
  Sender: FDA-Public Use
  Company Number: DE-ROCHE-729631

PATIENT
  Sex: Female

DRUGS (6)
  1. TRASTUZUMAB [Suspect]
     Indication: BREAST CANCER
     Dosage: LOADING DOSE
     Route: 042
     Dates: start: 20100419
  2. TRASTUZUMAB [Suspect]
     Dosage: MAINTENANCE DOSE
     Route: 042
     Dates: end: 20100705
  3. LAPATINIB [Suspect]
     Indication: BREAST CANCER
     Dosage: FREQUENCY : PER DAY
     Route: 048
     Dates: start: 20100823, end: 20100921
  4. LAPATINIB [Suspect]
     Dosage: FREQUENCY: PER DAY
     Route: 048
     Dates: start: 20100923, end: 20100928
  5. LAPATINIB [Suspect]
     Dosage: REDUCED DOSE, FREQUENCY: PER DAY
     Route: 048
     Dates: start: 20100930
  6. PACLITAXEL [Suspect]
     Indication: BREAST CANCER
     Route: 042
     Dates: start: 20100419, end: 20100705

REACTIONS (7)
  - DIARRHOEA [None]
  - DIZZINESS [None]
  - NAUSEA [None]
  - STOMATITIS [None]
  - VESTIBULAR DISORDER [None]
  - VOMITING [None]
  - WEIGHT DECREASED [None]
